FAERS Safety Report 8875464 (Version 2)
Quarter: 2012Q4

REPORT INFORMATION
  Report Type: 
  Country: CZ (occurrence: CZ)
  Receive Date: 20121029
  Receipt Date: 20121123
  Transmission Date: 20130627
  Serious: Yes (Life-Threatening, Hospitalization, Other)
  Sender: FDA-Public Use
  Company Number: CZ-SANOFI-AVENTIS-2012SA076796

PATIENT
  Age: 74 Year
  Sex: Female
  Weight: 80 kg

DRUGS (7)
  1. CLOPIDOGREL BISULFATE [Suspect]
     Indication: THROMBOSIS PROPHYLAXIS
     Dosage: strength: 75 mg
     Route: 048
     Dates: start: 20120801, end: 20120830
  2. MICARDIS PLUS [Concomitant]
     Indication: HYPERTENSION
     Dosage: strength: 80/ 12.5 mg
pharmaceutical form: 195592
     Route: 048
     Dates: start: 20120719, end: 20121101
  3. BETALOC [Concomitant]
     Indication: ISCHAEMIC HEART DISEASE
     Dosage: pharmaceutical form: 195595
     Route: 048
     Dates: start: 20120719, end: 20120827
  4. ROSUCARD [Concomitant]
     Indication: HYPERLIPAEMIA
     Dosage: strength: 10 mg
pharmaceutical form: 195588
     Route: 048
     Dates: start: 20120719, end: 20121101
  5. GODASAL [Concomitant]
     Indication: ISCHAEMIC HEART DISEASE
     Dosage: pharmaceutical form: 195592
strength: 100 (units not reported)
     Route: 048
     Dates: start: 20120719, end: 20121101
  6. ISOPTIN [Concomitant]
     Indication: ISCHAEMIC HEART DISEASE
     Dosage: strength: 240 mg
pharmaceutical form: 195595
sustained release
     Route: 048
     Dates: start: 20120827, end: 20121101
  7. MILURIT [Concomitant]
     Indication: HYPERURICAEMIA
     Dosage: strength: 100 (units not reported)
pharmaceutical form: 195592
     Route: 048
     Dates: start: 20120719, end: 20121101

REACTIONS (5)
  - Myelodysplastic syndrome [Recovered/Resolved]
  - Dyspnoea [Recovered/Resolved]
  - Asthenia [Recovered/Resolved]
  - Pyrexia [Recovered/Resolved]
  - Pancytopenia [Recovered/Resolved]
